FAERS Safety Report 9482663 (Version 1)
Quarter: 2013Q3

REPORT INFORMATION
  Report Type: Spontaneous
  Country: GB (occurrence: GB)
  Receive Date: 20130828
  Receipt Date: 20130828
  Transmission Date: 20140515
  Serious: Yes (Hospitalization)
  Sender: FDA-Public Use
  Company Number: GB-TEVA-427858ISR

PATIENT
  Age: 24 Year
  Sex: Male

DRUGS (4)
  1. TRAMADOL [Suspect]
     Route: 048
  2. DIAZEPAM [Suspect]
     Route: 048
  3. ZOMORPH [Suspect]
     Route: 048
  4. PREGABALIN [Suspect]
     Route: 048

REACTIONS (3)
  - Intentional overdose [Recovered/Resolved]
  - Convulsion [Recovered/Resolved]
  - Coma scale abnormal [Unknown]
